FAERS Safety Report 15164751 (Version 8)
Quarter: 2020Q2

REPORT INFORMATION
  Report Type: Spontaneous
  Country: US (occurrence: US)
  Receive Date: 20180719
  Receipt Date: 20200616
  Transmission Date: 20200713
  Serious: Yes (Other)
  Sender: FDA-Public Use
  Company Number: US-SA-2018SA194804

PATIENT

DRUGS (4)
  1. DUPIXENT [Suspect]
     Active Substance: DUPILUMAB
     Indication: PRODUCT USED FOR UNKNOWN INDICATION
     Dosage: 300 MG, QOW
     Route: 058
     Dates: start: 201804
  2. DUPIXENT [Suspect]
     Active Substance: DUPILUMAB
     Dosage: 600 MG, 1X
     Route: 058
     Dates: start: 201911
  3. DUPIXENT [Suspect]
     Active Substance: DUPILUMAB
     Dosage: 300 MG, QOW
     Route: 058
  4. DUPIXENT [Suspect]
     Active Substance: DUPILUMAB
     Dosage: 300 MG, QOW
     Route: 058
     Dates: start: 201901

REACTIONS (9)
  - Back pain [Unknown]
  - Pain in extremity [Unknown]
  - Nasopharyngitis [Unknown]
  - Dry eye [Unknown]
  - Product dose omission [Unknown]
  - Gastric bypass [Unknown]
  - Paraesthesia [Unknown]
  - Eye pain [Unknown]
  - Pain [Unknown]

NARRATIVE: CASE EVENT DATE: 20181013
